FAERS Safety Report 11833619 (Version 5)
Quarter: 2016Q4

REPORT INFORMATION
  Report Type: Report from Study
  Country: DK (occurrence: DK)
  Receive Date: 20151214
  Receipt Date: 20161122
  Transmission Date: 20170206
  Serious: Yes (Other)
  Sender: FDA-Public Use
  Company Number: DK-BAXALTA-2015BLT003218

PATIENT
  Age: 71 Year
  Sex: Female
  Weight: 71.3 kg

DRUGS (11)
  1. HYQVIA [Suspect]
     Active Substance: HUMAN IMMUNOGLOBULIN G\HYALURONIDASE RECOMBINANT HUMAN
     Dosage: 100 ML, 1X A MONTH
     Route: 058
     Dates: start: 20140206, end: 20140807
  2. SPIRIVA [Concomitant]
     Active Substance: TIOTROPIUM BROMIDE MONOHYDRATE
     Indication: CHRONIC OBSTRUCTIVE PULMONARY DISEASE
     Dosage: 1 PUFF, 1X A DAY
     Route: 055
     Dates: start: 20130627
  3. HYQVIA [Suspect]
     Active Substance: HUMAN IMMUNOGLOBULIN G\HYALURONIDASE RECOMBINANT HUMAN
     Indication: IMMUNODEFICIENCY
     Dosage: 100 ML, ONCE
     Route: 058
     Dates: start: 20140129, end: 20140129
  4. HYQVIA [Suspect]
     Active Substance: HUMAN IMMUNOGLOBULIN G\HYALURONIDASE RECOMBINANT HUMAN
     Dosage: 300 ML IG, ONCE
     Route: 058
     Dates: start: 20150220, end: 20150220
  5. SYMBICORT [Concomitant]
     Active Substance: BUDESONIDE\FORMOTEROL FUMARATE DIHYDRATE
     Indication: CHRONIC OBSTRUCTIVE PULMONARY DISEASE
     Dosage: 1 PUFF, 2X A DAY
     Route: 055
     Dates: start: 20140527
  6. HYQVIA [Suspect]
     Active Substance: HUMAN IMMUNOGLOBULIN G\HYALURONIDASE RECOMBINANT HUMAN
     Dosage: 300 ML, 1X A MONTH
     Route: 058
     Dates: start: 20140807
  7. HYQVIA [Suspect]
     Active Substance: HUMAN IMMUNOGLOBULIN G\HYALURONIDASE RECOMBINANT HUMAN
     Dosage: 300 ML IG, ONCE
     Route: 058
     Dates: start: 20150123, end: 20150123
  8. VITAMINERAL [Concomitant]
     Indication: PROPHYLAXIS
     Dosage: 1 TABLET, 1X A DAY
     Route: 048
     Dates: start: 20140429
  9. BRICANYL [Concomitant]
     Active Substance: TERBUTALINE SULFATE
     Indication: CHRONIC OBSTRUCTIVE PULMONARY DISEASE
     Dosage: 0.5 MG, AS NEEDED
     Route: 055
     Dates: start: 20120301
  10. UNIKALK FORTE [Concomitant]
     Indication: PROPHYLAXIS
     Dosage: 400 MG, 2X A DAY
     Route: 048
     Dates: start: 20130427
  11. AZITHROMYCIN ANHYDROUS. [Concomitant]
     Active Substance: AZITHROMYCIN ANHYDROUS
     Indication: PROPHYLAXIS
     Dosage: 500 MG, 2X A DAY
     Route: 048
     Dates: start: 20141010

REACTIONS (1)
  - Lymphoplasmacytoid lymphoma/immunocytoma recurrent [Not Recovered/Not Resolved]

NARRATIVE: CASE EVENT DATE: 20150116
